FAERS Safety Report 4627083-8 (Version None)
Quarter: 2005Q1

REPORT INFORMATION
  Report Type: 
  Country: None (occurrence: None)
  Receive Date: 20050331
  Receipt Date: 20050317
  Transmission Date: 20050727
  Serious: Yes (Death, Hospitalization, Other)
  Sender: FDA-Public Use
  Company Number: 17286

PATIENT
  Sex: Male
  Weight: 87.9978 kg

DRUGS (1)
  1. DAUNORUBICIN HCL [Suspect]
     Indication: ACUTE MYELOID LEUKAEMIA
     Dosage: 45 MG/M2 OTHER
     Dates: start: 20050205

REACTIONS (6)
  - CONFUSIONAL STATE [None]
  - COORDINATION ABNORMAL [None]
  - FEBRILE NEUTROPENIA [None]
  - HYPOTENSION [None]
  - RESPIRATORY DISTRESS [None]
  - URINARY INCONTINENCE [None]
